FAERS Safety Report 11440613 (Version 1)
Quarter: 2015Q3

REPORT INFORMATION
  Report Type: Spontaneous
  Country: US (occurrence: None)
  Receive Date: 20150831
  Receipt Date: 20150831
  Transmission Date: 20151125
  Serious: Yes (Life-Threatening, Hospitalization, Disabling)
  Sender: FDA-Public Use
  Company Number: None

PATIENT
  Age: 66 Year
  Sex: Male
  Weight: 100 kg

DRUGS (6)
  1. BENAZEPRIL [Concomitant]
     Active Substance: BENAZEPRIL HYDROCHLORIDE
  2. PROVIGIL [Concomitant]
     Active Substance: MODAFINIL
  3. MULTIVITAMIN [Concomitant]
     Active Substance: VITAMINS
  4. AMLODIPINE [Concomitant]
     Active Substance: AMLODIPINE BESYLATE
  5. PSUDOEPHEDRINE [Concomitant]
  6. ENBREL [Suspect]
     Active Substance: ETANERCEPT
     Indication: PSORIATIC ARTHROPATHY
     Route: 058

REACTIONS (8)
  - Nausea [None]
  - Diarrhoea [None]
  - Flushing [None]
  - Serotonin syndrome [None]
  - Insomnia [None]
  - Intestinal obstruction [None]
  - Vomiting [None]
  - Carcinoid tumour of the small bowel [None]

NARRATIVE: CASE EVENT DATE: 20150304
